FAERS Safety Report 6607371-6 (Version None)
Quarter: 2010Q1

REPORT INFORMATION
  Report Type: 
  Country: None (occurrence: None)
  Receive Date: 20100301
  Receipt Date: 20100217
  Transmission Date: 20100710
  Serious: Yes (Hospitalization)
  Sender: FDA-Public Use
  Company Number: US-BIOGENIDEC-2010BI005779

PATIENT
  Age: 63 Year
  Sex: Male

DRUGS (2)
  1. AVONEX [Suspect]
     Indication: MULTIPLE SCLEROSIS
     Route: 030
     Dates: start: 20000103, end: 20080725
  2. AVONEX [Suspect]
     Route: 030
     Dates: start: 20090523

REACTIONS (3)
  - CHEST DISCOMFORT [None]
  - DIZZINESS [None]
  - HYPOTENSION [None]
